FAERS Safety Report 8860916 (Version 1)
Quarter: 2012Q4

REPORT INFORMATION
  Report Type: 
  Country: US (occurrence: US)
  Receive Date: 20121025
  Receipt Date: 20121025
  Transmission Date: 20130627
  Serious: Yes (Other)
  Sender: FDA-Public Use
  Company Number: PHHY2012US095067

PATIENT

DRUGS (2)
  1. NILOTINIB [Suspect]
     Dosage: 400 mg, in the morning
     Route: 048
  2. MAALOX [Interacting]
     Dosage: 20 ml, UNK
     Route: 048

REACTIONS (1)
  - Lipase increased [Unknown]
